FAERS Safety Report 12621503 (Version 1)
Quarter: 2016Q3

REPORT INFORMATION
  Report Type: Spontaneous
  Country: US (occurrence: None)
  Receive Date: 20160803
  Receipt Date: 20160803
  Transmission Date: 20161109
  Serious: Yes (Hospitalization)
  Sender: FDA-Public Use
  Company Number: None

PATIENT
  Age: 72 Year
  Sex: Female
  Weight: 74.84 kg

DRUGS (3)
  1. LISINOPRIL. [Concomitant]
     Active Substance: LISINOPRIL
  2. PHENYTOIN (ORAL) MULTUM [Suspect]
     Active Substance: PHENYTOIN
     Indication: TRANSIENT ISCHAEMIC ATTACK
     Dates: start: 20160716
  3. PHENYTOIN (ORAL) MULTUM [Suspect]
     Active Substance: PHENYTOIN
     Indication: HYPERTENSION
     Dates: start: 20160716

REACTIONS (3)
  - Hypertension [None]
  - Loss of consciousness [None]
  - Treatment noncompliance [None]

NARRATIVE: CASE EVENT DATE: 20160715
